FAERS Safety Report 7704838-4 (Version None)
Quarter: 2011Q3

REPORT INFORMATION
  Report Type: 
  Country: None (occurrence: None)
  Receive Date: 20110823
  Receipt Date: 20110818
  Transmission Date: 20111222
  Serious: Yes (Death, Hospitalization)
  Sender: FDA-Public Use
  Company Number: PHHO2011GB08942

PATIENT
  Sex: Female
  Weight: 95.7 kg

DRUGS (10)
  1. EPOPROSTENOL SODIUM [Concomitant]
     Dosage: 40 MG/KG/MIN
     Route: 042
     Dates: start: 20110726, end: 20110814
  2. SILDENAFIL CITRATE [Concomitant]
     Dosage: 20 MG, TID
     Dates: end: 20110816
  3. GLEEVEC [Suspect]
     Indication: PULMONARY ARTERIAL HYPERTENSION
     Dosage: 200 MG, QD
     Route: 048
     Dates: start: 20100331, end: 20110529
  4. EPOPROSTENOL SODIUM [Concomitant]
     Indication: PULMONARY ARTERIAL HYPERTENSION
     Dosage: 30 MG/KG/MIN
     Route: 042
     Dates: start: 20080805
  5. WARFARIN SODIUM [Concomitant]
     Indication: ANTICOAGULANT THERAPY
     Dosage: AS PER INL, OD
     Route: 048
     Dates: start: 20080805, end: 20110721
  6. OMEPRAZOLE [Concomitant]
     Indication: GASTROOESOPHAGEAL REFLUX DISEASE
     Dosage: 20 MG, QD
     Route: 048
     Dates: start: 20081212
  7. ALLOPURINOL [Concomitant]
     Indication: PROPHYLAXIS
     Dosage: 100 MG, QD
     Route: 048
     Dates: start: 20090601, end: 20110621
  8. SPIRONOLACTONE [Concomitant]
     Indication: DIURETIC THERAPY
     Dosage: 125 MG, QD
     Route: 048
     Dates: start: 20081212, end: 20110720
  9. BUMETANIDE [Concomitant]
     Indication: DIURETIC THERAPY
     Dosage: 2 MG, QD
     Route: 048
     Dates: start: 20110620, end: 20110628
  10. SILDENAFIL CITRATE [Concomitant]
     Indication: PULMONARY ARTERIAL HYPERTENSION
     Dosage: 40 MG, TID
     Route: 048
     Dates: start: 20080824, end: 20110614

REACTIONS (4)
  - PULMONARY HYPERTENSION [None]
  - CONDITION AGGRAVATED [None]
  - RIGHT VENTRICULAR FAILURE [None]
  - RENAL IMPAIRMENT [None]
